FAERS Safety Report 8015544-3 (Version None)
Quarter: 2011Q4

REPORT INFORMATION
  Report Type: 
  Country: None (occurrence: None)
  Receive Date: 20111230
  Receipt Date: 20111221
  Transmission Date: 20120403
  Serious: Yes (Hospitalization)
  Sender: FDA-Public Use
  Company Number: US-SHIRE-ALL1-2011-05078

PATIENT
  Sex: Female
  Weight: 45.351 kg

DRUGS (1)
  1. CARBATROL [Suspect]
     Indication: EPILEPSY
     Dosage: 200 MG, 4X/DAY:QID (SEVEN CAPSULES DAILY)
     Route: 048
     Dates: start: 19970101, end: 20111101

REACTIONS (6)
  - DEPRESSION [None]
  - CONVULSION [None]
  - GAIT DISTURBANCE [None]
  - SPEECH DISORDER [None]
  - TOXICITY TO VARIOUS AGENTS [None]
  - GRAND MAL CONVULSION [None]
